FAERS Safety Report 12708140 (Version 1)
Quarter: 2016Q3

REPORT INFORMATION
  Report Type: Report from Study
  Country: CO (occurrence: CO)
  Receive Date: 20160901
  Receipt Date: 20160901
  Transmission Date: 20161109
  Serious: Yes (Other)
  Sender: FDA-Public Use
  Company Number: CO-INCYTE CORPORATION-2015IN007139

PATIENT

DRUGS (1)
  1. JAKAFI [Suspect]
     Active Substance: RUXOLITINIB
     Indication: SPLEEN DISORDER
     Dosage: 1 DF, Q12H
     Route: 065

REACTIONS (6)
  - Blood iron increased [Unknown]
  - Decreased appetite [Unknown]
  - Product use issue [Unknown]
  - Serum ferritin increased [Unknown]
  - Splenomegaly [Unknown]
  - Pain [Unknown]
